FAERS Safety Report 18652393 (Version 1)
Quarter: 2020Q4

REPORT INFORMATION
  Report Type: Spontaneous
  Country: JP (occurrence: JP)
  Receive Date: 20201223
  Receipt Date: 20201223
  Transmission Date: 20210114
  Serious: Yes (Hospitalization)
  Sender: FDA-Public Use
  Company Number: JP-TEVA-2020-JP-007454J

PATIENT
  Age: 82 Year
  Sex: Female

DRUGS (1)
  1. PRAVASTATIN NA TABLET 10MG ^TEVA^ [Suspect]
     Active Substance: PRAVASTATIN SODIUM
     Indication: PRODUCT USED FOR UNKNOWN INDICATION
     Route: 065
     Dates: start: 201907, end: 201908

REACTIONS (1)
  - Drug eruption [Unknown]
